FAERS Safety Report 15812866 (Version 1)
Quarter: 2019Q1

REPORT INFORMATION
  Report Type: Report from Study
  Country: US (occurrence: US)
  Receive Date: 20190111
  Receipt Date: 20190111
  Transmission Date: 20190417
  Serious: Yes (Other)
  Sender: FDA-Public Use
  Company Number: US-ALLERGAN-1901037US

PATIENT
  Age: 92 Year
  Sex: Female

DRUGS (11)
  1. TRAMADOL                           /00599202/ [Concomitant]
     Active Substance: TRAMADOL
     Indication: PRODUCT USED FOR UNKNOWN INDICATION
  2. COREG [Concomitant]
     Active Substance: CARVEDILOL
     Indication: PRODUCT USED FOR UNKNOWN INDICATION
  3. LISINOPRIL. [Concomitant]
     Active Substance: LISINOPRIL
     Indication: PRODUCT USED FOR UNKNOWN INDICATION
  4. HYDROCODONE BITARTRATE AND ACETAMINOPHEN [Concomitant]
     Active Substance: ACETAMINOPHEN\HYDROCODONE BITARTRATE
     Indication: PRODUCT USED FOR UNKNOWN INDICATION
  5. ZOLPIDEM [Concomitant]
     Active Substance: ZOLPIDEM\ZOLPIDEM TARTRATE
     Indication: PRODUCT USED FOR UNKNOWN INDICATION
  6. ELIQUIS [Concomitant]
     Active Substance: APIXABAN
     Indication: PRODUCT USED FOR UNKNOWN INDICATION
  7. ELUXADOLINE 100MG TAB (11307X) [Suspect]
     Active Substance: ELUXADOLINE
     Indication: IRRITABLE BOWEL SYNDROME
     Dosage: 1 BY MOUTH AS NEEDED EVERY DAY
     Route: 048
  8. NORVASC [Concomitant]
     Active Substance: AMLODIPINE BESYLATE
     Indication: PRODUCT USED FOR UNKNOWN INDICATION
  9. VITAMIN D                          /00107901/ [Concomitant]
     Active Substance: ERGOCALCIFEROL
     Indication: PRODUCT USED FOR UNKNOWN INDICATION
  10. LEVOTHYROXINE SODIUM. [Concomitant]
     Active Substance: LEVOTHYROXINE SODIUM
     Indication: PRODUCT USED FOR UNKNOWN INDICATION
  11. LOMOTIL [Concomitant]
     Active Substance: ATROPINE SULFATE\DIPHENOXYLATE HYDROCHLORIDE
     Indication: PRODUCT USED FOR UNKNOWN INDICATION

REACTIONS (20)
  - Pleuritic pain [Unknown]
  - Oedema [Unknown]
  - Abdominal pain [Unknown]
  - Diarrhoea [Unknown]
  - Atrial fibrillation [Unknown]
  - Anxiety [Unknown]
  - Chest pain [Unknown]
  - Weight decreased [Unknown]
  - Decreased appetite [Unknown]
  - Peripheral swelling [Unknown]
  - Inappropriate schedule of product administration [Unknown]
  - Coronary artery disease [Unknown]
  - Hypertension [Unknown]
  - Diabetes mellitus [Unknown]
  - Hyperlipidaemia [Unknown]
  - Fatigue [Unknown]
  - Hypothyroidism [Unknown]
  - Sleep disorder [Unknown]
  - Pernicious anaemia [Unknown]
  - Arthritis [Unknown]
